FAERS Safety Report 15146894 (Version 3)
Quarter: 2018Q4

REPORT INFORMATION
  Report Type: Spontaneous
  Country: US (occurrence: US)
  Receive Date: 20180716
  Receipt Date: 20181127
  Transmission Date: 20190204
  Serious: No
  Sender: FDA-Public Use
  Company Number: US-CELGENEUS-USA-20180703524

PATIENT
  Age: 83 Year
  Sex: Male
  Weight: 87.17 kg

DRUGS (3)
  1. REVLIMID [Suspect]
     Active Substance: LENALIDOMIDE
     Dosage: 5 MILLIGRAM
     Route: 048
     Dates: start: 2017
  2. REVLIMID [Suspect]
     Active Substance: LENALIDOMIDE
     Indication: PLASMA CELL MYELOMA
     Route: 048
     Dates: start: 201611
  3. REVLIMID [Suspect]
     Active Substance: LENALIDOMIDE
     Dosage: 5 MILLIGRAM
     Route: 048
     Dates: start: 20170514, end: 201709

REACTIONS (5)
  - Laboratory test abnormal [Not Recovered/Not Resolved]
  - Neutropenia [Not Recovered/Not Resolved]
  - Condition aggravated [Not Recovered/Not Resolved]
  - Impaired gastric emptying [Recovered/Resolved]
  - Red blood cell count decreased [Not Recovered/Not Resolved]

NARRATIVE: CASE EVENT DATE: 201709
